FAERS Safety Report 17191048 (Version 1)
Quarter: 2019Q4

REPORT INFORMATION
  Report Type: Spontaneous
  Country: CA (occurrence: CA)
  Receive Date: 20191223
  Receipt Date: 20191223
  Transmission Date: 20200122
  Serious: Yes (Other)
  Sender: FDA-Public Use
  Company Number: CA-PFIZER INC-2019547851

PATIENT
  Sex: Female

DRUGS (20)
  1. PREMARIN [Interacting]
     Active Substance: ESTROGENS, CONJUGATED
     Dosage: 0.5 G, UNK
     Route: 061
  2. VITAMIN D3 [Interacting]
     Active Substance: CHOLECALCIFEROL
     Dosage: 1.0 DF, UNK
     Route: 065
  3. DEPAKOTE [Interacting]
     Active Substance: DIVALPROEX SODIUM
     Dosage: 1.0 DF, 2X/DAY
     Route: 065
  4. MINT ZOPICLONE [Interacting]
     Active Substance: ZOPICLONE
     Indication: INSOMNIA
     Dosage: 1 DF, 1X/DAY
     Route: 065
  5. OLANZAPINE. [Interacting]
     Active Substance: OLANZAPINE
     Indication: MOOD ALTERED
     Dosage: UNK
  6. ESTRADIOL. [Interacting]
     Active Substance: ESTRADIOL
     Dosage: 1.0 DF, UNK
     Route: 067
  7. ARIPIPRAZOLE. [Interacting]
     Active Substance: ARIPIPRAZOLE
     Dosage: UNK
     Route: 065
  8. JAMP ACETAMINOPHEN [Interacting]
     Active Substance: ACETAMINOPHEN
     Indication: PYREXIA
     Dosage: 2 DF, UNK
     Route: 065
  9. OLANZAPINE. [Interacting]
     Active Substance: OLANZAPINE
     Indication: MOOD ALTERED
     Dosage: 1 DF, 2X/DAY
     Route: 065
  10. AA CLOZAPINE [Interacting]
     Active Substance: CLOZAPINE
     Dosage: 3.0 DF, 1X/DAY
     Route: 065
  11. ALMAGEL [ALUMINIUM HYDROXIDE;MAGNESIUM HYDROXIDE] [Interacting]
     Active Substance: ALUMINUM HYDROXIDE\MAGNESIUM HYDROXIDE
     Indication: ABDOMINAL DISCOMFORT
     Dosage: 30.0 ML, UNK
     Route: 048
  12. APO-RANITIDINE [Interacting]
     Active Substance: RANITIDINE
     Dosage: 1.0 DF, 2X/DAY
     Route: 065
  13. LEVOTHYROXINE SODIUM. [Interacting]
     Active Substance: LEVOTHYROXINE SODIUM
     Dosage: 1 DF, UNK
     Route: 065
  14. BREXPIPRAZOLE [Interacting]
     Active Substance: BREXPIPRAZOLE
     Dosage: UNK
     Route: 065
  15. CLOTRIMAZOLE. [Interacting]
     Active Substance: CLOTRIMAZOLE
     Indication: RASH
     Dosage: UNK UNK, 2X/DAY
     Route: 065
  16. JAMP ACETAMINOPHEN [Interacting]
     Active Substance: ACETAMINOPHEN
     Indication: PAIN
  17. AMLODIPINE BESILATE [Suspect]
     Active Substance: AMLODIPINE BESYLATE
     Dosage: 1.0 DF, 1X/DAY
     Route: 065
  18. AA CLOZAPINE [Interacting]
     Active Substance: CLOZAPINE
     Dosage: 1.0 DF, 1X/DAY
     Route: 065
  19. FLUVIRAL [Interacting]
     Active Substance: INFLUENZA VIRUS VACCINE
     Dosage: UNK
     Route: 065
  20. OLANZAPINE. [Interacting]
     Active Substance: OLANZAPINE
     Dosage: 1 DF, 2X/DAY

REACTIONS (4)
  - Drug level increased [Unknown]
  - Schizoaffective disorder [Unknown]
  - Drug interaction [Unknown]
  - Electrocardiogram QT prolonged [Unknown]
